FAERS Safety Report 20430231 (Version 3)
Quarter: 2022Q2

REPORT INFORMATION
  Report Type: Spontaneous
  Country: AT (occurrence: AT)
  Receive Date: 20220204
  Receipt Date: 20220410
  Transmission Date: 20220720
  Serious: Yes (Other)
  Sender: FDA-Public Use
  Company Number: AT-009507513-2202AUT000804

PATIENT
  Age: 55 Year
  Sex: Male

DRUGS (4)
  1. SUGAMMADEX SODIUM [Suspect]
     Active Substance: SUGAMMADEX SODIUM
     Indication: Neuromuscular blockade reversal
     Dosage: 2.35 MILLIGRAM/KILOGRAM
  2. ROCURONIUM BROMIDE [Concomitant]
     Active Substance: ROCURONIUM BROMIDE
     Indication: Neuromuscular blocking therapy
     Dosage: 0.59 MILLIGRAM/KILOGRAM
  3. ROCURONIUM BROMIDE [Concomitant]
     Active Substance: ROCURONIUM BROMIDE
     Indication: Bronchoscopy
  4. AMIODARONE [Concomitant]
     Active Substance: AMIODARONE
     Indication: Arrhythmia

REACTIONS (1)
  - Pulmonary haemorrhage [Unknown]
